FAERS Safety Report 11196953 (Version 2)
Quarter: 2015Q3

REPORT INFORMATION
  Report Type: Spontaneous
  Country: GB (occurrence: GB)
  Receive Date: 20150617
  Receipt Date: 20150909
  Transmission Date: 20151125
  Serious: Yes (Other)
  Sender: FDA-Public Use
  Company Number: GB-JNJFOC-20150611697

PATIENT
  Age: 73 Year
  Sex: Male

DRUGS (2)
  1. NAPROXEN. [Concomitant]
     Active Substance: NAPROXEN
     Indication: ANKYLOSING SPONDYLITIS
     Route: 065
  2. SIMPONI [Suspect]
     Active Substance: GOLIMUMAB
     Indication: ANKYLOSING SPONDYLITIS
     Dosage: 50MG/5ML
     Route: 058
     Dates: start: 20130308, end: 201504

REACTIONS (2)
  - Blindness [Not Recovered/Not Resolved]
  - Schwannoma [Unknown]

NARRATIVE: CASE EVENT DATE: 201504
